FAERS Safety Report 6465187 (Version 5)
Quarter: 2020Q3

REPORT INFORMATION
  Report Type: Report from Study
  Country: GB (occurrence: GB)
  Receive Date: 20071113
  Receipt Date: 20140314
  Transmission Date: 20201105
  Serious: Yes (Life-Threatening, Hospitalization)
  Sender: FDA-Public Use
  Company Number: GB-ROCHE-529586

PATIENT
  Age: 60 Year
  Sex: Female

DRUGS (1)
  1. IBANDRONIC ACID. [Suspect]
     Active Substance: IBANDRONIC ACID
     Indication: METASTASES TO BONE
     Dosage: TAKEN WITH 180 ? 240 ML OF PLAIN WATER. TEMPORARILY INTERRUPTED.
     Route: 048
     Dates: start: 20061107, end: 20071022

REACTIONS (2)
  - Lower respiratory tract infection [Not Recovered/Not Resolved]
  - Renal failure [Recovered/Resolved with Sequelae]

NARRATIVE: CASE EVENT DATE: 20071022
